FAERS Safety Report 7629023-6 (Version None)
Quarter: 2011Q3

REPORT INFORMATION
  Report Type: 
  Country: None (occurrence: None)
  Receive Date: 20110715
  Receipt Date: 20110701
  Transmission Date: 20111222
  Serious: Yes (Other)
  Sender: FDA-Public Use
  Company Number: 969286

PATIENT
  Age: 51 Year
  Sex: Female

DRUGS (3)
  1. AVASTIN [Concomitant]
  2. CARBOPLATIN [Suspect]
     Indication: LUNG CANCER METASTATIC
     Dosage: 600 MG MILLIGRAM(S), INTRAVENOUS
     Route: 042
     Dates: start: 20110211, end: 20110531
  3. PACLITAXEL [Concomitant]

REACTIONS (2)
  - DYSPNOEA [None]
  - PARAESTHESIA [None]
